FAERS Safety Report 24593853 (Version 1)
Quarter: 2024Q4

REPORT INFORMATION
  Report Type: Spontaneous
  Country: BA (occurrence: BA)
  Receive Date: 20241108
  Receipt Date: 20241108
  Transmission Date: 20250115
  Serious: Yes (Other)
  Sender: NOVARTIS
  Company Number: BA-002147023-NVSC2024BA213562

PATIENT
  Sex: Male

DRUGS (2)
  1. NILOTINIB [Suspect]
     Active Substance: NILOTINIB
     Dosage: 600 MG
     Route: 065
     Dates: start: 201502
  2. NILOTINIB [Suspect]
     Active Substance: NILOTINIB
     Dosage: 800 MG, QD
     Route: 065

REACTIONS (3)
  - Myocardial infarction [Unknown]
  - Pleural effusion [Recovered/Resolved with Sequelae]
  - Coronary artery disease [Unknown]

NARRATIVE: CASE EVENT DATE: 20211001
